FAERS Safety Report 11530274 (Version 1)
Quarter: 2015Q3

REPORT INFORMATION
  Report Type: Spontaneous
  Country: US (occurrence: US)
  Receive Date: 20150921
  Receipt Date: 20150921
  Transmission Date: 20151125
  Serious: Yes (Hospitalization, Other)
  Sender: FDA-Public Use
  Company Number: US-JNJFOC-20150911667

PATIENT
  Sex: Female

DRUGS (1)
  1. REMICADE [Suspect]
     Active Substance: INFLIXIMAB
     Indication: HIDRADENITIS
     Route: 042

REACTIONS (5)
  - Product use issue [Unknown]
  - Drug dose omission [Unknown]
  - Pain [Not Recovered/Not Resolved]
  - Condition aggravated [Unknown]
  - Hospitalisation [Unknown]

NARRATIVE: CASE EVENT DATE: 201506
